FAERS Safety Report 17355586 (Version 1)
Quarter: 2020Q1

REPORT INFORMATION
  Report Type: Report from Study
  Country: IT (occurrence: IT)
  Receive Date: 20200131
  Receipt Date: 20200131
  Transmission Date: 20200409
  Serious: Yes (Other)
  Sender: FDA-Public Use
  Company Number: IT-MYLANLABS-2020M1010914

PATIENT
  Age: 46 Year
  Sex: Female
  Weight: 60 kg

DRUGS (1)
  1. PACLITAXEL MYLAN GENERICS 6 MG/ML [Suspect]
     Active Substance: PACLITAXEL
     Indication: BREAST CANCER
     Dosage: 135.2 MILLIGRAM, CYCLE
     Route: 042
     Dates: start: 20191014

REACTIONS (1)
  - Hepatotoxicity [Not Recovered/Not Resolved]

NARRATIVE: CASE EVENT DATE: 20191118
